FAERS Safety Report 8346151 (Version 4)
Quarter: 2012Q4

REPORT INFORMATION
  Report Type: Report from Study
  Country: TR (occurrence: TR)
  Receive Date: 20120120
  Receipt Date: 20120907
  Transmission Date: 20130627
  Serious: Yes (Life-Threatening, Hospitalization)
  Sender: FDA-Public Use
  Company Number: PHHO2012TR001328

PATIENT
  Sex: Male
  Weight: 63.5 kg

DRUGS (1)
  1. FTY [Suspect]
     Indication: MULTIPLE SCLEROSIS
     Dosage: 0.5 mg, QD
     Route: 048
     Dates: start: 20110325, end: 20120111

REACTIONS (1)
  - Myocardial infarction [Recovering/Resolving]
